FAERS Safety Report 9759277 (Version 1)
Quarter: 2013Q4

REPORT INFORMATION
  Report Type: Spontaneous
  Country: US (occurrence: None)
  Receive Date: 20131216
  Receipt Date: 20131216
  Transmission Date: 20140711
  Serious: Yes (Other)
  Sender: FDA-Public Use
  Company Number: 163-21880-12111460 (0)

PATIENT
  Age: 74 Year
  Sex: Male

DRUGS (1)
  1. REVLIMID(LENALIDOMIDE)(5 MILLIGRAM, CAPSULES) [Suspect]
     Indication: CHRONIC LYMPHOCYTIC LEUKAEMIA
     Dosage: 5 MG, 1 IN 1 D, PO?10 MG, 1 IN 1 D , PO? ? ? ? ?

REACTIONS (7)
  - Rash [None]
  - Asthenia [None]
  - Dry skin [None]
  - Ear infection [None]
  - Bronchitis [None]
  - White blood cell count decreased [None]
  - Sinusitis [None]
